FAERS Safety Report 19502116 (Version 1)
Quarter: 2021Q3

REPORT INFORMATION
  Report Type: Spontaneous
  Country: PT (occurrence: PT)
  Receive Date: 20210707
  Receipt Date: 20210707
  Transmission Date: 20211014
  Serious: Yes (Other)
  Sender: FDA-Public Use
  Company Number: PT-ACCORD-230798

PATIENT
  Age: 61 Year
  Sex: Female
  Weight: 65 kg

DRUGS (2)
  1. CAPECITABINE ACCORD [Suspect]
     Active Substance: CAPECITABINE
     Indication: COLON CANCER
     Dosage: 1000MG BID 14 DAYS Q21D
     Route: 048
     Dates: start: 20201028, end: 20210310
  2. OXALIPLATINA KABI [Suspect]
     Active Substance: OXALIPLATIN
     Indication: COLON CANCER
     Dosage: CAPOX PROTOCOL: OXALIPLATIN 130MG/M2 IV D1 Q21D.
     Route: 042
     Dates: start: 20201028, end: 20210209

REACTIONS (3)
  - Paraesthesia [Unknown]
  - Neutropenia [Recovered/Resolved]
  - Thrombocytosis [Recovered/Resolved]

NARRATIVE: CASE EVENT DATE: 20210209
